FAERS Safety Report 20602659 (Version 1)
Quarter: 2022Q1

REPORT INFORMATION
  Report Type: Spontaneous
  Country: US (occurrence: US)
  Receive Date: 20220316
  Receipt Date: 20220316
  Transmission Date: 20220423
  Serious: Yes (Other)
  Sender: FDA-Public Use
  Company Number: US-ANIPHARMA-2022-US-005356

PATIENT
  Age: 61 Year
  Sex: Female
  Weight: 95.26 kg

DRUGS (14)
  1. PROPRANOLOL HYDROCHLORIDE [Suspect]
     Active Substance: PROPRANOLOL HYDROCHLORIDE
     Indication: Depression
     Dosage: 1 CAPSULE EITHER EACH DAY OR TWICE DAILY
     Route: 048
     Dates: start: 202005, end: 20200824
  2. FUROSEMIDE [Concomitant]
     Active Substance: FUROSEMIDE
  3. ESTRADIOL [Concomitant]
     Active Substance: ESTRADIOL
  4. TRAZODONE [Concomitant]
     Active Substance: TRAZODONE HYDROCHLORIDE
  5. MONTELUKAST [Concomitant]
     Active Substance: MONTELUKAST SODIUM
  6. PRIMIDONE [Concomitant]
     Active Substance: PRIMIDONE
     Dates: end: 2020
  7. ETODOLAC [Concomitant]
     Active Substance: ETODOLAC
  8. PREGABALIN [Concomitant]
     Active Substance: PREGABALIN
  9. ESCITALOPRAM [Concomitant]
     Active Substance: ESCITALOPRAM OXALATE
  10. TRAMADOL [Concomitant]
     Active Substance: TRAMADOL
  11. PANTOPRAZOLE [Concomitant]
     Active Substance: PANTOPRAZOLE
  12. ATORVASTATIN [Concomitant]
     Active Substance: ATORVASTATIN
  13. LEVOTHYROXINE [Concomitant]
     Active Substance: LEVOTHYROXINE
  14. POTASSIUM [Concomitant]
     Active Substance: POTASSIUM

REACTIONS (5)
  - Depression [Recovered/Resolved]
  - Lethargy [Recovered/Resolved]
  - Suicidal ideation [Recovered/Resolved]
  - Indifference [Recovered/Resolved]
  - Off label use [Recovered/Resolved]

NARRATIVE: CASE EVENT DATE: 20200501
